FAERS Safety Report 20490987 (Version 1)
Quarter: 2022Q1

REPORT INFORMATION
  Report Type: Report from Study
  Country: RU (occurrence: RU)
  Receive Date: 20220218
  Receipt Date: 20220218
  Transmission Date: 20220423
  Serious: Yes (Death)
  Sender: FDA-Public Use
  Company Number: RU-AMRYT PHARMACEUTICALS DAC-AEGR005461

PATIENT

DRUGS (1)
  1. METRELEPTIN [Suspect]
     Active Substance: METRELEPTIN
     Indication: Congenital generalised lipodystrophy
     Dosage: 5.8 MILLIGRAM, QD
     Route: 058
     Dates: start: 20211214

REACTIONS (1)
  - Disease complication [Fatal]
